FAERS Safety Report 25825407 (Version 1)
Quarter: 2025Q3

REPORT INFORMATION
  Report Type: Spontaneous
  Country: EU (occurrence: EU)
  Receive Date: 20250919
  Receipt Date: 20250919
  Transmission Date: 20251020
  Serious: Yes (Other)
  Sender: AMGEN
  Company Number: EU-AMGEN-DEUSP2025182952

PATIENT
  Age: 82 Year
  Sex: Male

DRUGS (1)
  1. ARANESP [Suspect]
     Active Substance: DARBEPOETIN ALFA
     Indication: Haemoglobin decreased
     Route: 065
     Dates: start: 2025

REACTIONS (4)
  - Prostate cancer metastatic [Unknown]
  - Renal failure [Unknown]
  - Haemoglobin decreased [Unknown]
  - Therapy non-responder [Unknown]
